FAERS Safety Report 4632830-5 (Version None)
Quarter: 2005Q2

REPORT INFORMATION
  Report Type: 
  Country: None (occurrence: None)
  Receive Date: 20050325
  Receipt Date: 20050218
  Transmission Date: 20051028
  Serious: No
  Sender: FDA-Public Use
  Company Number: USA041286412

PATIENT
  Age: 76 Year
  Sex: Female
  Weight: 59 kg

DRUGS (16)
  1. FORTEO [Suspect]
     Indication: COMPRESSION FRACTURE
     Dosage: 20 UG DAY
     Dates: start: 20040901, end: 20050111
  2. HUMIRA [Concomitant]
  3. MEDROL [Concomitant]
  4. CALCIUM GLUCONATE [Concomitant]
  5. SYNTHROID [Concomitant]
  6. ARAVA [Concomitant]
  7. LOTENSIN [Concomitant]
  8. METOPROLOL TARTRATE [Concomitant]
  9. HYDRALAZINE [Concomitant]
  10. OXYCONTIN [Concomitant]
  11. NEURONTIN (GABAPENTIN PFIZER) [Concomitant]
  12. LIDODERM (LIDOCAINE JELLY) [Concomitant]
  13. PRILOSEC (OMEPRAZOLE RATIOPHARM) [Concomitant]
  14. VITAMIN C [Concomitant]
  15. VITAMIN D [Concomitant]
  16. MULTI-VITAMIN [Concomitant]

REACTIONS (8)
  - ABDOMINAL PAIN UPPER [None]
  - BALANCE DISORDER [None]
  - DECREASED APPETITE [None]
  - GASTRIC DISORDER [None]
  - LUNG NEOPLASM [None]
  - MUSCULAR WEAKNESS [None]
  - PALPITATIONS [None]
  - WEIGHT DECREASED [None]
